FAERS Safety Report 17868662 (Version 2)
Quarter: 2020Q2

REPORT INFORMATION
  Report Type: Spontaneous
  Country: GR (occurrence: GR)
  Receive Date: 20200606
  Receipt Date: 20200610
  Transmission Date: 20200714
  Serious: Yes (Other)
  Sender: FDA-Public Use
  Company Number: NVSC2020GR085221

PATIENT
  Age: 57 Year
  Sex: Male

DRUGS (2)
  1. VORICONAZOLE. [Suspect]
     Active Substance: VORICONAZOLE
     Indication: CRYPTOCOCCOSIS
     Dosage: 4 MG/KG, BIW, Q12H
     Route: 065
  2. ISAVUCONAZOLE [Concomitant]
     Active Substance: ISAVUCONAZOLE
     Indication: CRYPTOCOCCOSIS
     Dosage: 372 MG PO/QD
     Route: 048

REACTIONS (3)
  - Product use in unapproved indication [Unknown]
  - Hepatotoxicity [Unknown]
  - Off label use [Unknown]
